FAERS Safety Report 19728474 (Version 3)
Quarter: 2024Q2

REPORT INFORMATION
  Report Type: Report from Study
  Country: GB (occurrence: GB)
  Receive Date: 20210820
  Receipt Date: 20240603
  Transmission Date: 20240716
  Serious: Yes (Death, Hospitalization, Other)
  Sender: FDA-Public Use
  Company Number: GB-JNJFOC-20210827573

PATIENT
  Age: 31 Year
  Sex: Male

DRUGS (1)
  1. REMICADE [Suspect]
     Active Substance: INFLIXIMAB
     Indication: Colitis ulcerative
     Route: 041
     Dates: start: 20200125, end: 20200725

REACTIONS (4)
  - Colon cancer metastatic [Fatal]
  - Pulmonary embolism [Not Recovered/Not Resolved]
  - Ileus [Recovered/Resolved with Sequelae]
  - Chronic hepatitis [Not Recovered/Not Resolved]

NARRATIVE: CASE EVENT DATE: 20200601
